FAERS Safety Report 23557580 (Version 2)
Quarter: 2024Q2

REPORT INFORMATION
  Report Type: Spontaneous
  Country: US (occurrence: US)
  Receive Date: 20240223
  Receipt Date: 20240524
  Transmission Date: 20240716
  Serious: No
  Sender: FDA-Public Use
  Company Number: US-ANVISA-2023M1129408

PATIENT
  Age: 64 Year
  Sex: Female
  Weight: 90.703 kg

DRUGS (2)
  1. INSULIN GLARGINE [Suspect]
     Active Substance: INSULIN GLARGINE
     Indication: Type 1 diabetes mellitus
     Dosage: 26 UNITS PER MILLILITRE, QD (ONCE A DAY)
     Route: 058
  2. INSULIN GLARGINE [Suspect]
     Active Substance: INSULIN GLARGINE
     Dosage: 26 UNITS/ML QD
     Route: 058

REACTIONS (2)
  - Device mechanical issue [Unknown]
  - Product quality issue [Unknown]
